FAERS Safety Report 13561072 (Version 1)
Quarter: 2017Q2

REPORT INFORMATION
  Report Type: Spontaneous
  Country: US (occurrence: US)
  Receive Date: 20170518
  Receipt Date: 20170518
  Transmission Date: 20170830
  Serious: No
  Sender: FDA-Public Use
  Company Number: US-ROCHE-1345199

PATIENT
  Sex: Female
  Weight: 94.43 kg

DRUGS (4)
  1. NAPROSYN [Suspect]
     Active Substance: NAPROXEN
     Indication: ARTHRITIS
  2. NAPROSYN [Suspect]
     Active Substance: NAPROXEN
     Indication: FIBROMYALGIA
     Route: 065
  3. NAPROSYN [Suspect]
     Active Substance: NAPROXEN
     Indication: MIGRAINE
  4. NAPROSYN [Suspect]
     Active Substance: NAPROXEN
     Indication: ARTHRALGIA

REACTIONS (1)
  - Drug ineffective [Unknown]
